FAERS Safety Report 4574436-2 (Version None)
Quarter: 2005Q1

REPORT INFORMATION
  Report Type: 
  Country: None (occurrence: None)
  Receive Date: 20050204
  Receipt Date: 20050125
  Transmission Date: 20050727
  Serious: Yes (Other)
  Sender: FDA-Public Use
  Company Number: 2005019838

PATIENT
  Sex: Male
  Weight: 70.3075 kg

DRUGS (2)
  1. DILANTIN [Suspect]
     Indication: CONVULSION
     Dates: start: 20000101
  2. TAMSULOSIN HYDROCHLORIDE (TAMSULOSIN HYDROCHLORIDE) [Concomitant]

REACTIONS (5)
  - BLADDER DISORDER [None]
  - BODY HEIGHT DECREASED [None]
  - GRAND MAL CONVULSION [None]
  - NOCTURIA [None]
  - WEIGHT DECREASED [None]
